FAERS Safety Report 4988728-6 (Version None)
Quarter: 2006Q2

REPORT INFORMATION
  Report Type: 
  Country: None (occurrence: None)
  Receive Date: 20060426
  Receipt Date: 20060405
  Transmission Date: 20061013
  Serious: Yes (Other)
  Sender: FDA-Public Use
  Company Number: 2006053831

PATIENT
  Age: 16 Year
  Sex: Female

DRUGS (9)
  1. CETIRIZINE HCL [Suspect]
     Indication: ILL-DEFINED DISORDER
  2. RAPAMYCIN (SIROLIMUS) [Suspect]
     Indication: ILL-DEFINED DISORDER
  3. TACROLIMUS [Concomitant]
  4. PREDNISONE TAB [Concomitant]
  5. ATENOLOL [Concomitant]
  6. AMLODIPINE [Concomitant]
  7. INSULIN [Concomitant]
  8. CITALOPRAM HYDROBROMIDE [Concomitant]
  9. OXYBUTYNIN [Concomitant]

REACTIONS (10)
  - CYANOSIS [None]
  - DIFFUSE ALVEOLAR DAMAGE [None]
  - HYPOXIA [None]
  - INFLAMMATION [None]
  - INTERSTITIAL LUNG DISEASE [None]
  - LUNG DISORDER [None]
  - PULMONARY ARTERIAL PRESSURE INCREASED [None]
  - PULMONARY FUNCTION TEST DECREASED [None]
  - PULMONARY TOXICITY [None]
  - RESPIRATORY DISTRESS [None]
